FAERS Safety Report 14312384 (Version 1)
Quarter: 2017Q4

REPORT INFORMATION
  Report Type: Spontaneous
  Country: US (occurrence: US)
  Receive Date: 20171221
  Receipt Date: 20171221
  Transmission Date: 20180321
  Serious: Yes (Other)
  Sender: FDA-Public Use
  Company Number: US-BAYER-2017-240744

PATIENT
  Sex: Male

DRUGS (1)
  1. MIRALAX [Suspect]
     Active Substance: POLYETHYLENE GLYCOL 3350
     Indication: CONSTIPATION
     Dosage: 2 DF, QD (CAPFULS)
     Dates: start: 2015, end: 2017

REACTIONS (7)
  - Panic attack [Unknown]
  - Stereotypy [Unknown]
  - Drug dependence [Unknown]
  - Nervous system disorder [Unknown]
  - Aggression [Unknown]
  - Drug ineffective [Unknown]
  - Anxiety [Unknown]
